FAERS Safety Report 6114851-9 (Version None)
Quarter: 2009Q1

REPORT INFORMATION
  Report Type: 
  Country: None (occurrence: None)
  Receive Date: 20090311
  Receipt Date: 20080411
  Transmission Date: 20090719
  Serious: Yes (Hospitalization)
  Sender: FDA-Public Use
  Company Number: US200804001399

PATIENT
  Age: 76 Year
  Sex: Female
  Weight: 62.6 kg

DRUGS (2)
  1. GEMZAR [Suspect]
     Indication: NON-SMALL CELL LUNG CANCER STAGE IV
     Dosage: 1 G
     Dates: start: 20080226
  2. CARBOPLATIN [Concomitant]

REACTIONS (1)
  - OEDEMA PERIPHERAL [None]
